FAERS Safety Report 8607381-3 (Version None)
Quarter: 2012Q3

REPORT INFORMATION
  Report Type: 
  Country: None (occurrence: None)
  Receive Date: 20120821
  Receipt Date: 20120815
  Transmission Date: 20120928
  Serious: No
  Sender: FDA-Public Use
  Company Number: US-PFIZER INC-2012200123

PATIENT
  Age: 66 Year
  Sex: Female

DRUGS (4)
  1. FLEXERIL [Suspect]
     Dosage: UNK
  2. AMITRIPTYLINE HYDROCHLORIDE [Suspect]
     Dosage: UNK
  3. NEOSPORIN [Suspect]
     Dosage: UNK
  4. ELAVIL [Suspect]
     Dosage: UNK

REACTIONS (2)
  - DRUG HYPERSENSITIVITY [None]
  - RASH [None]
